FAERS Safety Report 21407690 (Version 2)
Quarter: 2022Q4

REPORT INFORMATION
  Report Type: Spontaneous
  Country: FR (occurrence: FR)
  Receive Date: 20221004
  Receipt Date: 20221104
  Transmission Date: 20230112
  Serious: Yes (Other)
  Sender: FDA-Public Use
  Company Number: FR-PFIZER INC-PV202200069616

PATIENT
  Age: 58 Year
  Sex: Female

DRUGS (3)
  1. NIRMATRELVIR\RITONAVIR [Interacting]
     Active Substance: NIRMATRELVIR\RITONAVIR
     Indication: COVID-19 treatment
     Dosage: [PF-07321332 150 MG]/[RITONAVIR 100 MG]; 2X/DAY FOR 5 DAYS (DAY 7 TO DAY 11)
  2. TACROLIMUS [Interacting]
     Active Substance: TACROLIMUS
     Indication: Immune disorder prophylaxis
     Dosage: ON DAY 12, 12 H AFTER THE LAST DOSE OF PAXLOVID
  3. MYCOPHENOLIC ACID [Concomitant]
     Active Substance: MYCOPHENOLIC ACID
     Indication: Liver transplant
     Dosage: WERE REINTRODUCED ON DAY 12, (12 H AFTER THE LAST DOSE OF PAXLOVID)

REACTIONS (2)
  - Drug interaction [Recovering/Resolving]
  - Drug level increased [Recovering/Resolving]
